FAERS Safety Report 9731281 (Version 3)
Quarter: 2013Q4

REPORT INFORMATION
  Report Type: Spontaneous
  Country: US (occurrence: US)
  Receive Date: 20131203
  Receipt Date: 20131220
  Transmission Date: 20140711
  Serious: Yes (Life-Threatening)
  Sender: FDA-Public Use
  Company Number: US-BRISTOL-MYERS SQUIBB COMPANY-19794981

PATIENT
  Age: 65 Year
  Sex: Female

DRUGS (3)
  1. SPRYCEL [Suspect]
     Indication: CHRONIC MYELOID LEUKAEMIA
     Route: 048
     Dates: start: 2011, end: 20131020
  2. SERTRALINE [Concomitant]
  3. SYNTHROID [Concomitant]

REACTIONS (9)
  - Subdural haematoma [Unknown]
  - Convulsion [Unknown]
  - Renal failure [Unknown]
  - Infection [Unknown]
  - Photosensitivity reaction [Unknown]
  - Fatigue [Unknown]
  - Diarrhoea [Unknown]
  - Headache [Unknown]
  - Pleural effusion [Unknown]
